FAERS Safety Report 14805241 (Version 1)
Quarter: 2018Q2

REPORT INFORMATION
  Report Type: Spontaneous
  Country: US (occurrence: US)
  Receive Date: 20180417
  Receipt Date: 20180417
  Transmission Date: 20180711
  Serious: Yes (Hospitalization)
  Sender: FDA-Public Use
  Company Number: None

PATIENT
  Age: 63 Year
  Sex: Female

DRUGS (1)
  1. LETAIRIS [Suspect]
     Active Substance: AMBRISENTAN
     Indication: PULMONARY ARTERIAL HYPERTENSION
     Route: 048
     Dates: start: 20141020

REACTIONS (5)
  - Sepsis [None]
  - Cellulitis [None]
  - Chest discomfort [None]
  - Anxiety [None]
  - Device dislocation [None]

NARRATIVE: CASE EVENT DATE: 20180324
